FAERS Safety Report 10508511 (Version 1)
Quarter: 2014Q4

REPORT INFORMATION
  Report Type: Spontaneous
  Country: US (occurrence: None)
  Receive Date: 20141008
  Receipt Date: 20141008
  Transmission Date: 20150528
  Serious: Yes (Hospitalization)
  Sender: FDA-Public Use
  Company Number: None

PATIENT
  Age: 40 Year
  Sex: Male
  Weight: 90.3 kg

DRUGS (1)
  1. LORAZEPAM. [Suspect]
     Active Substance: LORAZEPAM
     Indication: ANXIETY
     Dosage: 1 MG HS PO?~09/10/2010 THRU ~03/26/2014
     Route: 048
     Dates: start: 20100910, end: 20140326

REACTIONS (2)
  - Loss of consciousness [None]
  - Syncope [None]

NARRATIVE: CASE EVENT DATE: 20140326
